FAERS Safety Report 5002541-5 (Version None)
Quarter: 2006Q2

REPORT INFORMATION
  Report Type: 
  Country: None (occurrence: None)
  Receive Date: 20060515
  Receipt Date: 20051117
  Transmission Date: 20061013
  Serious: Yes (Death, Hospitalization, Other)
  Sender: FDA-Public Use
  Company Number: US-MERCK-0511USA03256

PATIENT
  Age: 42 Year
  Sex: Female
  Weight: 105 kg

DRUGS (2)
  1. VIOXX [Suspect]
     Indication: PAIN
     Route: 048
     Dates: start: 20000414, end: 20000926
  2. ASPIRIN [Concomitant]
     Route: 065

REACTIONS (6)
  - ACUTE CORONARY SYNDROME [None]
  - CARDIO-RESPIRATORY ARREST [None]
  - FALL [None]
  - MYOCARDIAL INFARCTION [None]
  - MYOCARDIAL ISCHAEMIA [None]
  - PAIN IN EXTREMITY [None]
